FAERS Safety Report 9167564 (Version 2)
Quarter: 2013Q3

REPORT INFORMATION
  Report Type: Report from Study
  Country: CA (occurrence: CA)
  Receive Date: 20130318
  Receipt Date: 20130709
  Transmission Date: 20140515
  Serious: Yes (Hospitalization)
  Sender: FDA-Public Use
  Company Number: CA-JNJFOC-20130303218

PATIENT
  Age: 47 Year
  Sex: Male
  Weight: 97 kg

DRUGS (7)
  1. REMICADE [Suspect]
     Indication: CROHN^S DISEASE
     Route: 042
  2. REMICADE [Suspect]
     Indication: CROHN^S DISEASE
     Route: 042
     Dates: start: 20121010
  3. RISPERIDONE [Concomitant]
     Dosage: HS
     Route: 065
  4. VENLAFAXINE [Concomitant]
     Dosage: HS
     Route: 065
  5. ZYLOPRIM [Concomitant]
     Route: 065
  6. BUSCOPAN [Concomitant]
     Dosage: AS NECESSARY (PRN)
     Route: 065
  7. COVERSYL [Concomitant]
     Route: 065

REACTIONS (1)
  - Obstruction [Recovering/Resolving]
